FAERS Safety Report 5037776-9 (Version None)
Quarter: 2006Q2

REPORT INFORMATION
  Report Type: 
  Country: None (occurrence: None)
  Receive Date: 20060601
  Receipt Date: 20060202
  Transmission Date: 20061013
  Serious: No
  Sender: FDA-Public Use
  Company Number: 2006PV008062

PATIENT
  Age: 59 Year
  Sex: Male
  Weight: 177.3564 kg

DRUGS (5)
  1. BYETTA [Suspect]
     Indication: DIABETES MELLITUS NON-INSULIN-DEPENDENT
     Dosage: SEE IMAGE
     Route: 058
     Dates: start: 20051103, end: 20051208
  2. BYETTA [Suspect]
     Indication: DIABETES MELLITUS NON-INSULIN-DEPENDENT
     Dosage: SEE IMAGE
     Route: 058
     Dates: start: 20051209
  3. GLIPIZIDE [Concomitant]
  4. METFORMIN [Concomitant]
  5. ACTOPLUS MET [Concomitant]

REACTIONS (2)
  - ANOREXIA [None]
  - WEIGHT DECREASED [None]
